FAERS Safety Report 6576875-7 (Version None)
Quarter: 2010Q1

REPORT INFORMATION
  Report Type: 
  Country: None (occurrence: None)
  Receive Date: 20100210
  Receipt Date: 20100208
  Transmission Date: 20100710
  Serious: Yes (Hospitalization)
  Sender: FDA-Public Use
  Company Number: A0843564A

PATIENT
  Age: 48 Year
  Sex: Female
  Weight: 104.5 kg

DRUGS (1)
  1. AVANDARYL [Suspect]
     Route: 048
     Dates: start: 20061001, end: 20061201

REACTIONS (4)
  - CARDIOVASCULAR DISORDER [None]
  - CHEST PAIN [None]
  - DYSPNOEA [None]
  - OEDEMA [None]
